FAERS Safety Report 9095379 (Version 2)
Quarter: 2013Q3

REPORT INFORMATION
  Report Type: Spontaneous
  Country: US (occurrence: US)
  Receive Date: 20130201
  Receipt Date: 20130712
  Transmission Date: 20140515
  Serious: No
  Sender: FDA-Public Use
  Company Number: US-009507513-1301USA012757

PATIENT
  Age: 20 Year
  Sex: Female

DRUGS (1)
  1. IMPLANON [Suspect]
     Indication: CONTRACEPTION
     Dosage: 1 DF, UNK
     Route: 059
     Dates: start: 201207

REACTIONS (5)
  - Device difficult to use [Unknown]
  - Metrorrhagia [Recovered/Resolved]
  - Infection [Recovered/Resolved]
  - Haematoma [Recovering/Resolving]
  - Implant site fibrosis [Recovering/Resolving]
